FAERS Safety Report 9292829 (Version 5)
Quarter: 2013Q3

REPORT INFORMATION
  Report Type: Report from Study
  Country: FR (occurrence: FR)
  Receive Date: 20130516
  Receipt Date: 20130725
  Transmission Date: 20140515
  Serious: Yes (Hospitalization)
  Sender: FDA-Public Use
  Company Number: FR-BAXTER-2013BAX017389

PATIENT
  Age: 2 Year
  Sex: Female
  Weight: 12.5 kg

DRUGS (23)
  1. HOLOXAN 4 G, LYOPHILISAT POUR SOLUTION INJECTABLE [Suspect]
     Indication: NEOPLASM MALIGNANT
     Route: 042
     Dates: start: 20130430
  2. HOLOXAN 4 G, LYOPHILISAT POUR SOLUTION INJECTABLE [Suspect]
     Route: 042
     Dates: start: 20130501
  3. HOLOXAN 4 G, LYOPHILISAT POUR SOLUTION INJECTABLE [Suspect]
     Route: 042
     Dates: start: 20130525
  4. HOLOXAN 4 G, LYOPHILISAT POUR SOLUTION INJECTABLE [Suspect]
     Route: 042
     Dates: start: 20130525
  5. UROMITEXAN 1 G/10 ML, SOLUTION INJECTABLE POUR PERFUSION EN FLACON [Suspect]
     Indication: PRODUCT USED FOR UNKNOWN INDICATION
     Route: 065
     Dates: start: 20130430, end: 20130503
  6. ACTINOMYCIN D [Suspect]
     Indication: NEOPLASM MALIGNANT
     Route: 042
     Dates: start: 20130430
  7. ACTINOMYCIN D [Suspect]
     Route: 042
     Dates: start: 20130524
  8. ACTINOMYCIN D [Suspect]
     Route: 042
     Dates: start: 20130614
  9. VINCRISTINE [Suspect]
     Indication: NEOPLASM MALIGNANT
     Route: 042
     Dates: start: 20130430
  10. VINCRISTINE [Suspect]
     Route: 065
     Dates: start: 20130531
  11. VINCRISTINE [Suspect]
     Route: 065
     Dates: start: 20130614
  12. DOXORUBICIN [Suspect]
     Indication: NEOPLASM MALIGNANT
     Dosage: 60 MG/M2/2 DAYS
     Route: 042
     Dates: start: 20130430
  13. DOXORUBICIN [Suspect]
     Dosage: 60 MG/M2/2 DAYS
     Route: 042
     Dates: start: 20130501
  14. DOXORUBICIN [Suspect]
     Route: 065
     Dates: start: 20130525
  15. BACTRIM [Concomitant]
     Indication: PRODUCT USED FOR UNKNOWN INDICATION
     Route: 065
     Dates: start: 20130430
  16. BACTRIM [Concomitant]
     Route: 065
     Dates: start: 20130425
  17. PLITICAN [Concomitant]
     Indication: PRODUCT USED FOR UNKNOWN INDICATION
     Route: 065
     Dates: start: 20130430, end: 20130503
  18. ZOPHREN [Concomitant]
     Indication: PRODUCT USED FOR UNKNOWN INDICATION
     Route: 065
     Dates: start: 20130430, end: 20130503
  19. METHYLENE BLUE [Concomitant]
     Indication: PRODUCT USED FOR UNKNOWN INDICATION
     Route: 065
     Dates: start: 20130501, end: 20130502
  20. NACL [Concomitant]
     Indication: PRODUCT USED FOR UNKNOWN INDICATION
     Route: 065
     Dates: start: 20130430, end: 20130502
  21. RIVOTRIL [Concomitant]
     Indication: PRODUCT USED FOR UNKNOWN INDICATION
     Route: 065
     Dates: start: 20130510, end: 20130518
  22. PETHIDINE HYDROCHLORIDE [Concomitant]
     Indication: PRODUCT USED FOR UNKNOWN INDICATION
     Route: 065
     Dates: start: 20130510, end: 20130517
  23. NALBUPHINE HYDROCHLORIDE [Concomitant]
     Indication: PRODUCT USED FOR UNKNOWN INDICATION
     Route: 065
     Dates: start: 20130604, end: 20130604

REACTIONS (4)
  - Hyponatraemia [Recovered/Resolved]
  - Febrile bone marrow aplasia [Recovered/Resolved]
  - Febrile bone marrow aplasia [Recovered/Resolved]
  - Febrile bone marrow aplasia [Recovered/Resolved]
